FAERS Safety Report 23801818 (Version 1)
Quarter: 2024Q2

REPORT INFORMATION
  Report Type: Spontaneous
  Country: US (occurrence: US)
  Receive Date: 20240501
  Receipt Date: 20240501
  Transmission Date: 20240716
  Serious: Yes (Life-Threatening, Hospitalization, Other)
  Sender: FDA-Public Use
  Company Number: US-BRISTOL-MYERS SQUIBB COMPANY-2024-063745

PATIENT
  Age: 55 Year
  Sex: Male

DRUGS (2)
  1. BELATACEPT [Suspect]
     Active Substance: BELATACEPT
     Indication: Lung transplant
  2. RITUXIMAB [Suspect]
     Active Substance: RITUXIMAB
     Indication: Lung transplant

REACTIONS (3)
  - Hyperammonaemia [Unknown]
  - Ureaplasma infection [Unknown]
  - Off label use [Unknown]
